FAERS Safety Report 22176556 (Version 1)
Quarter: 2023Q2

REPORT INFORMATION
  Report Type: Spontaneous
  Country: US (occurrence: US)
  Receive Date: 20230405
  Receipt Date: 20230405
  Transmission Date: 20230721
  Serious: No
  Sender: FDA-Public Use
  Company Number: US-drreddys-SPO/USA/23/0161677

PATIENT
  Age: 30 Year
  Sex: Female

DRUGS (1)
  1. ACCUTANE [Suspect]
     Active Substance: ISOTRETINOIN
     Indication: Acne
     Dates: start: 2021, end: 2021

REACTIONS (4)
  - Product dose omission issue [Unknown]
  - Product administration interrupted [Unknown]
  - Drug ineffective [Unknown]
  - Product quality issue [Unknown]
